FAERS Safety Report 7233094-9 (Version None)
Quarter: 2011Q1

REPORT INFORMATION
  Report Type: 
  Country: None (occurrence: None)
  Receive Date: 20110119
  Receipt Date: 20110106
  Transmission Date: 20110831
  Serious: Yes (Other)
  Sender: FDA-Public Use
  Company Number: PHHY2010US67047

PATIENT
  Sex: Female

DRUGS (3)
  1. RECLAST [Suspect]
     Dosage: 5 MG, UNK
     Route: 042
     Dates: start: 20100902
  2. FLUCONAZOLE [Concomitant]
     Indication: ORAL CANDIDIASIS
  3. MULTIVITAMIN [Concomitant]

REACTIONS (10)
  - ARTHRALGIA [None]
  - ORAL DISCOMFORT [None]
  - BACK PAIN [None]
  - BONE PAIN [None]
  - GLOSSODYNIA [None]
  - STOMATITIS [None]
  - ORAL PAIN [None]
  - PARAESTHESIA [None]
  - PELVIC PAIN [None]
  - DRY MOUTH [None]
